FAERS Safety Report 23218839 (Version 1)
Quarter: 2023Q4

REPORT INFORMATION
  Report Type: Spontaneous
  Country: RU (occurrence: RU)
  Receive Date: 20231122
  Receipt Date: 20231122
  Transmission Date: 20240110
  Serious: Yes (Other)
  Sender: FDA-Public Use
  Company Number: RU-002147023-NVSC2023RU245297

PATIENT
  Age: 63 Year
  Sex: Female

DRUGS (1)
  1. BROLUCIZUMAB [Suspect]
     Active Substance: BROLUCIZUMAB
     Indication: Product used for unknown indication
     Dosage: UNK
     Route: 031

REACTIONS (10)
  - Iridocyclitis [Recovered/Resolved]
  - Eye inflammation [Recovered/Resolved]
  - Eye opacity [Recovered/Resolved]
  - Vision blurred [Recovered/Resolved]
  - Retinal neovascularisation [Unknown]
  - Anterior chamber inflammation [Unknown]
  - Lenticular opacities [Unknown]
  - Macular fibrosis [Unknown]
  - Macular pigmentation [Unknown]
  - Retinal depigmentation [Unknown]
